FAERS Safety Report 10967676 (Version 1)
Quarter: 2015Q1

REPORT INFORMATION
  Report Type: Spontaneous
  Country: US (occurrence: US)
  Receive Date: 20150330
  Receipt Date: 20150330
  Transmission Date: 20150721
  Serious: No
  Sender: FDA-Public Use
  Company Number: US-ASTRAZENECA-2014SE21950

PATIENT
  Sex: Female

DRUGS (1)
  1. NEXIUM [Suspect]
     Active Substance: ESOMEPRAZOLE MAGNESIUM
     Dosage: 20 MG OR 40 MG EVERY OTHER DAY
     Route: 048
     Dates: start: 2014

REACTIONS (2)
  - Feeling abnormal [Unknown]
  - Intentional product misuse [Unknown]
